FAERS Safety Report 16180867 (Version 1)
Quarter: 2019Q2

REPORT INFORMATION
  Report Type: Spontaneous
  Country: NL (occurrence: IT)
  Receive Date: 20190410
  Receipt Date: 20190410
  Transmission Date: 20190711
  Serious: Yes (Other)
  Sender: FDA-Public Use
  Company Number: IT-FRESENIUS KABI-FK201903612

PATIENT
  Age: 70 Year
  Sex: Male
  Weight: 56 kg

DRUGS (4)
  1. CALCIUM LEVOFOLINATE PENTAHYDRATE [Concomitant]
     Active Substance: LEVOLEUCOVORIN CALCIUM
     Indication: OESOPHAGEAL ADENOCARCINOMA STAGE IV
     Route: 042
     Dates: start: 20180709, end: 20190118
  2. OXALIPLATIN (MANUFACTURER UNKNOWN) [Suspect]
     Active Substance: OXALIPLATIN
     Indication: OESOPHAGEAL ADENOCARCINOMA STAGE IV
     Route: 042
     Dates: start: 20180709, end: 20190118
  3. FLUOROURACIL. [Suspect]
     Active Substance: FLUOROURACIL
     Indication: OESOPHAGEAL ADENOCARCINOMA STAGE IV
     Route: 042
     Dates: start: 20180709, end: 20190118
  4. FLUOROURACIL. [Suspect]
     Active Substance: FLUOROURACIL
     Route: 040
     Dates: start: 20180709, end: 20190118

REACTIONS (5)
  - Bronchostenosis [Recovering/Resolving]
  - Salivary hypersecretion [Recovering/Resolving]
  - Feeling hot [Recovering/Resolving]
  - Back pain [Recovering/Resolving]
  - Dizziness [Recovering/Resolving]

NARRATIVE: CASE EVENT DATE: 20190118
